FAERS Safety Report 5958123-1 (Version None)
Quarter: 2008Q4

REPORT INFORMATION
  Report Type: 
  Country: None (occurrence: None)
  Receive Date: 20081119
  Receipt Date: 20081117
  Transmission Date: 20090506
  Serious: Yes (Other)
  Sender: FDA-Public Use
  Company Number: US-BRISTOL-MYERS SQUIBB COMPANY-14409650

PATIENT
  Age: 45 Year
  Sex: Male

DRUGS (6)
  1. ATAZANAVIR SULFATE [Interacting]
     Indication: ANTIRETROVIRAL THERAPY
  2. RALTEGRAVIR [Interacting]
     Indication: ANTIRETROVIRAL THERAPY
  3. DARUNAVIR [Suspect]
     Indication: ANTIRETROVIRAL THERAPY
  4. RITONAVIR [Suspect]
     Indication: ANTIRETROVIRAL THERAPY
  5. ZIDOVUDINE [Suspect]
     Indication: ANTIRETROVIRAL THERAPY
  6. TENOFOVIR DF + EMTRICITABINE [Suspect]
     Indication: ANTIRETROVIRAL THERAPY

REACTIONS (2)
  - BLOOD ALKALINE PHOSPHATASE INCREASED [None]
  - DRUG INTERACTION [None]
